FAERS Safety Report 8373637-5 (Version None)
Quarter: 2012Q2

REPORT INFORMATION
  Report Type: 
  Country: None (occurrence: None)
  Receive Date: 20120521
  Receipt Date: 20120516
  Transmission Date: 20120825
  Serious: Yes (Death)
  Sender: FDA-Public Use
  Company Number: GB-ASTRAZENECA-2012SE31568

PATIENT
  Age: 5 Year
  Sex: Female

DRUGS (33)
  1. FLUTICASONE PROPIONATE [Suspect]
     Dates: start: 20000817
  2. ANTIBIOTICS [Concomitant]
     Dates: start: 19971222, end: 19971229
  3. GALPSEUD [Concomitant]
     Dates: start: 19981201
  4. SEREVENT [Concomitant]
  5. PULMICORT [Suspect]
     Route: 055
     Dates: start: 20001010
  6. FLUTICASONE PROPIONATE [Suspect]
     Dates: start: 19981201
  7. CROMOLYN SODIUM [Concomitant]
     Dates: start: 19971010
  8. PREDNISOLONE [Concomitant]
     Route: 048
     Dates: start: 19981217
  9. PULMICORT [Suspect]
     Indication: ASTHMA
     Route: 055
     Dates: start: 19971105, end: 19971229
  10. FLUTICASONE PROPIONATE [Suspect]
     Indication: ASTHMA
     Dates: start: 19971229
  11. FLUTICASONE PROPIONATE [Suspect]
     Dates: start: 19990120
  12. FLUTICASONE PROPIONATE [Suspect]
     Dates: start: 19991028
  13. FLUTICASONE PROPIONATE/SALMETEROL [Suspect]
     Dates: start: 20010216
  14. FLUTICASONE PROPIONATE [Suspect]
     Dates: start: 19981217
  15. FLUTICASONE PROPIONATE [Suspect]
     Dates: start: 20000626
  16. PULMICORT [Suspect]
     Route: 055
     Dates: end: 20001026
  17. FLUTICASONE PROPIONATE [Suspect]
     Dates: start: 19991007
  18. COMBIVENT [Concomitant]
     Dates: start: 19970508
  19. FLUTICASONE PROPIONATE [Suspect]
     Dates: start: 19980319
  20. FLUTICASONE PROPIONATE [Suspect]
     Dates: start: 19990329
  21. FLUTICASONE PROPIONATE [Suspect]
     Dates: start: 19990623
  22. FLUTICASONE PROPIONATE [Suspect]
  23. FLUTICASONE PROPIONATE/SALMETEROL [Suspect]
  24. CROMOLYN SODIUM [Concomitant]
     Dates: start: 19990120, end: 19990329
  25. GALPSEUD [Concomitant]
     Dates: start: 20011120
  26. PULMICORT [Suspect]
     Route: 055
     Dates: start: 20000914
  27. FLUTICASONE PROPIONATE [Suspect]
     Dates: start: 19980929
  28. SLOPHYLLINE [Concomitant]
     Dates: start: 19990111
  29. MONTELUKAST [Concomitant]
     Dates: start: 19991111
  30. FLUTICASONE PROPIONATE [Suspect]
     Dates: start: 19980513
  31. FLUTICASONE PROPIONATE/SALMETEROL [Suspect]
     Indication: ASTHMA
     Dates: start: 20001026
  32. ALBUTEROL [Concomitant]
     Dosage: AS NEEDED
     Dates: start: 19971105
  33. PREDNISOLONE [Concomitant]
     Route: 048
     Dates: start: 19971107, end: 19971112

REACTIONS (1)
  - ADRENAL INSUFFICIENCY [None]
